FAERS Safety Report 4507615-0 (Version None)
Quarter: 2004Q4

REPORT INFORMATION
  Report Type: 
  Country: None (occurrence: None)
  Receive Date: 20040928
  Receipt Date: 20040723
  Transmission Date: 20050328
  Serious: No
  Sender: FDA-Public Use
  Company Number: 04P-163-0268047-00

PATIENT
  Sex: Female
  Weight: 77.1115 kg

DRUGS (15)
  1. HUMIRA [Suspect]
     Indication: RHEUMATOID ARTHRITIS
     Dosage: 40 MG, 1 IN 2 WK, SUBCUTANEOUS
     Route: 058
     Dates: start: 20030423
  2. SALBUTAMOL [Concomitant]
  3. MULTI-VITAMINS [Concomitant]
  4. CALCIUM WITH VITAMIN D [Concomitant]
  5. DIPHENHYDRAMINE HYDROCHLORIDE [Concomitant]
  6. FUROSEMIDE [Concomitant]
  7. POTASSIUM CHLORIDE [Concomitant]
  8. HYDROCODONE [Concomitant]
  9. RETINOL [Concomitant]
  10. TOCOPHEROL CONCENTRATE CAP [Concomitant]
  11. PROPAFENONE HCL [Concomitant]
  12. LISINOPRIL [Concomitant]
  13. CARVEDILOL [Concomitant]
  14. DILTIAZEM HYDROCHLORIDE [Concomitant]
  15. PREDNISONE [Concomitant]

REACTIONS (5)
  - ATRIAL FIBRILLATION [None]
  - CONDITION AGGRAVATED [None]
  - DIZZINESS [None]
  - DRUG EFFECT DECREASED [None]
  - DYSPNOEA [None]
